FAERS Safety Report 4407061-4 (Version None)
Quarter: 2004Q3

REPORT INFORMATION
  Report Type: 
  Country: None (occurrence: None)
  Receive Date: 20040721
  Receipt Date: 20040706
  Transmission Date: 20050211
  Serious: Yes (Life-Threatening, Hospitalization)
  Sender: FDA-Public Use
  Company Number: 2004-UK-00656UK (0)

PATIENT
  Age: 83 Year
  Sex: Male

DRUGS (9)
  1. PERSANTIN [Suspect]
     Indication: CEREBROVASCULAR ACCIDENT
     Dosage: 400 MG PO (200 MG, BD)
     Route: 048
     Dates: start: 20000101
  2. ADENOSINE (ADENOSINE) (NR) [Suspect]
     Indication: SUPRAVENTRICULAR TACHYCARDIA
     Dosage: 6 MG, IV
     Route: 042
     Dates: start: 20040617, end: 20040617
  3. TRAMADOL HCL [Concomitant]
  4. ALENDRONIC ACID (ALENDRONIC ACID) [Concomitant]
  5. LANSOPRAZOLE [Concomitant]
  6. PREDNISOLONE [Concomitant]
  7. FUROSEMIDE [Concomitant]
  8. SODIUM BICARBONATE IN PLASTIC CONTAINER [Concomitant]
  9. ALFACALCIDOL [Concomitant]

REACTIONS (2)
  - ATRIOVENTRICULAR BLOCK COMPLETE [None]
  - VENTRICULAR ASYSTOLE [None]
